FAERS Safety Report 20823111 (Version 1)
Quarter: 2022Q2

REPORT INFORMATION
  Report Type: Report from Study
  Country: US (occurrence: US)
  Receive Date: 20220512
  Receipt Date: 20220512
  Transmission Date: 20220720
  Serious: Yes (Other)
  Sender: FDA-Public Use
  Company Number: US-JNJFOC-20220508276

PATIENT
  Sex: Female
  Weight: 77.180 kg

DRUGS (3)
  1. DARZALEX [Suspect]
     Active Substance: DARATUMUMAB
     Indication: Plasma cell myeloma
     Route: 042
     Dates: start: 202202
  2. VELCADE [Suspect]
     Active Substance: BORTEZOMIB
     Indication: Plasma cell myeloma
     Route: 042
     Dates: start: 202202
  3. DEXAMETHASONE [Suspect]
     Active Substance: DEXAMETHASONE
     Indication: Plasma cell myeloma
     Route: 042
     Dates: start: 202202

REACTIONS (8)
  - Loss of consciousness [Unknown]
  - Surgery [Unknown]
  - Headache [Unknown]
  - Vision blurred [Unknown]
  - Eye swelling [Unknown]
  - Swelling face [Unknown]
  - Hypoaesthesia [Unknown]
  - Arthropathy [Unknown]

NARRATIVE: CASE EVENT DATE: 20220401
